FAERS Safety Report 8984223 (Version 1)
Quarter: 2012Q4

REPORT INFORMATION
  Report Type: Spontaneous
  Country: US (occurrence: None)
  Receive Date: 20121214
  Receipt Date: 20121214
  Transmission Date: 20130627
  Serious: Yes (Hospitalization)
  Sender: FDA-Public Use
  Company Number: 1523144

PATIENT
  Age: 92 Year
  Sex: Female

DRUGS (4)
  1. AMIODARONE [Suspect]
     Indication: PAROXYSMAL ATRIAL FIBRILLATION
  2. VERAPAMIL [Concomitant]
  3. LISINOPRIL [Concomitant]
  4. WARFARIN [Concomitant]

REACTIONS (7)
  - Acute respiratory distress syndrome [None]
  - Acute interstitial pneumonitis [None]
  - Nodal rhythm [None]
  - Hypotension [None]
  - Cardiac failure congestive [None]
  - Bradycardia [None]
  - Mitral valve incompetence [None]
